FAERS Safety Report 22055210 (Version 1)
Quarter: 2023Q1

REPORT INFORMATION
  Report Type: Spontaneous
  Country: DE (occurrence: DE)
  Receive Date: 20230302
  Receipt Date: 20230302
  Transmission Date: 20230417
  Serious: Yes (Other)
  Sender: FDA-Public Use
  Company Number: DE-SAMSUNG BIOEPIS-SB-2023-03205

PATIENT
  Age: 80 Year
  Sex: Male

DRUGS (5)
  1. ADALIMUMAB [Suspect]
     Active Substance: ADALIMUMAB
     Indication: Uveitis
     Dosage: UNK
     Route: 065
  2. METHOTREXATE [Concomitant]
     Active Substance: METHOTREXATE
     Indication: Uveitis
     Dosage: 5 MILLIGRAM, QW,LOW DOSE
     Route: 065
  3. PREDNISONE [Concomitant]
     Active Substance: PREDNISONE
     Indication: Uveitis
     Dosage: 7.5 MG, QD, FOLLOWED WEEKLY TAPERING MAINTENANCE
     Route: 048
  4. PREDNISONE [Concomitant]
     Active Substance: PREDNISONE
     Dosage: EQUIVALENT INITIAL DOSE 1-2 MG/KG BODYWEIGHT
     Route: 048
  5. PREDNISONE [Concomitant]
     Active Substance: PREDNISONE
     Dosage: 5 MILLIGRAM, QD, 5.0 MG/D
     Route: 048

REACTIONS (2)
  - Herpes simplex [Recovered/Resolved]
  - Macular oedema [Recovered/Resolved]
